FAERS Safety Report 6505814-X (Version None)
Quarter: 2009Q4

REPORT INFORMATION
  Report Type: 
  Country: None (occurrence: None)
  Receive Date: 20091217
  Receipt Date: 20091217
  Transmission Date: 20100525
  Serious: Yes (Hospitalization)
  Sender: FDA-Public Use
  Company Number: None

PATIENT
  Age: 19 Year
  Sex: Male
  Weight: 96.6162 kg

DRUGS (2)
  1. LEVAQUIN [Suspect]
     Indication: OROPHARYNGEAL PAIN
     Dosage: 500MG ONE TIME DAILY PO
     Route: 048
     Dates: start: 20091203, end: 20091207
  2. HALDOL [Suspect]
     Indication: ABNORMAL BEHAVIOUR
     Dosage: ONE DAILY PO
     Route: 048

REACTIONS (7)
  - AURICULAR SWELLING [None]
  - DRUG DOSE OMISSION [None]
  - INAPPROPRIATE SCHEDULE OF DRUG ADMINISTRATION [None]
  - NASAL OEDEMA [None]
  - PHARYNGEAL OEDEMA [None]
  - PRURITUS GENERALISED [None]
  - URTICARIA [None]
